FAERS Safety Report 20443601 (Version 1)
Quarter: 2022Q1

REPORT INFORMATION
  Report Type: Spontaneous
  Country: US (occurrence: US)
  Receive Date: 20220208
  Receipt Date: 20220208
  Transmission Date: 20220423
  Serious: No
  Sender: FDA-Public Use
  Company Number: US-GW PHARMA-202202USGW00542

PATIENT
  Age: 1 Year
  Sex: Male
  Weight: 12.698 kg

DRUGS (3)
  1. EPIDIOLEX [Suspect]
     Active Substance: CANNABIDIOL
     Indication: Partial seizures
     Dosage: 20.48 MG/KG/DAY, 130 MILLIGRAM, BID
     Route: 048
     Dates: start: 202112, end: 202201
  2. EPIDIOLEX [Suspect]
     Active Substance: CANNABIDIOL
     Indication: Epilepsy
     Dosage: 23.63 MG/KG/DAY, 150 MILLIGRAM, BID
     Route: 048
     Dates: start: 202201
  3. EPIDIOLEX [Suspect]
     Active Substance: CANNABIDIOL
     Indication: Simple partial seizures

REACTIONS (3)
  - Seizure [Recovered/Resolved]
  - Prescribed overdose [Unknown]
  - Product use in unapproved indication [Unknown]

NARRATIVE: CASE EVENT DATE: 20220101
